FAERS Safety Report 21874131 (Version 1)
Quarter: 2023Q1

REPORT INFORMATION
  Report Type: Spontaneous
  Country: US (occurrence: None)
  Receive Date: 20230116
  Receipt Date: 20230116
  Transmission Date: 20230417
  Serious: Yes (Hospitalization)
  Sender: FDA-Public Use
  Company Number: None

PATIENT
  Age: 66 Year
  Sex: Male
  Weight: 64.77 kg

DRUGS (16)
  1. CAPECITABINE [Suspect]
     Active Substance: CAPECITABINE
     Indication: Colon cancer
     Dosage: FREQUENCY : TWICE A DAY;?
     Route: 048
  2. AMLODIPINE [Concomitant]
     Active Substance: AMLODIPINE BESYLATE
  3. ASPIRIN [Concomitant]
     Active Substance: ASPIRIN
  4. ATORVASTATIN [Concomitant]
  5. CLOPIDOGREL [Concomitant]
     Active Substance: CLOPIDOGREL BISULFATE
  6. ENTRESTO [Concomitant]
     Active Substance: SACUBITRIL\VALSARTAN
  7. ESCITALOPRAM [Concomitant]
     Active Substance: ESCITALOPRAM OXALATE
  8. ICOSAPENT EHTYL [Concomitant]
  9. ISOSORBIDE [Concomitant]
     Active Substance: ISOSORBIDE
  10. LISINOPRIL [Concomitant]
     Active Substance: LISINOPRIL
  11. METOPROLOL [Concomitant]
     Active Substance: METOPROLOL
  12. NITROSTAT [Concomitant]
     Active Substance: NITROGLYCERIN
  13. ONDANSETRON [Concomitant]
     Active Substance: ONDANSETRON
  14. PEPCID [Concomitant]
     Active Substance: FAMOTIDINE
  15. LORATADINE [Concomitant]
     Active Substance: LORATADINE
  16. ZETIA [Concomitant]
     Active Substance: EZETIMIBE

REACTIONS (4)
  - Diarrhoea [None]
  - Dehydration [None]
  - Hypotension [None]
  - Blood potassium decreased [None]
